FAERS Safety Report 12095225 (Version 1)
Quarter: 2016Q1

REPORT INFORMATION
  Report Type: Spontaneous
  Country: US (occurrence: US)
  Receive Date: 20160219
  Receipt Date: 20160219
  Transmission Date: 20160526
  Serious: Yes (Other)
  Sender: FDA-Public Use
  Company Number: US-ABBVIE-16P-163-1564124-00

PATIENT
  Sex: Male
  Weight: 102.05 kg

DRUGS (2)
  1. RIBAVIRIN. [Suspect]
     Active Substance: RIBAVIRIN
     Indication: HEPATITIS C
     Route: 048
     Dates: start: 20140403, end: 201405
  2. SOFOSBUVIR [Suspect]
     Active Substance: SOFOSBUVIR
     Indication: HEPATITIS C
     Route: 048
     Dates: start: 20140403, end: 201405

REACTIONS (13)
  - Anaemia [Not Recovered/Not Resolved]
  - Drug administration error [Not Recovered/Not Resolved]
  - Renal impairment [Not Recovered/Not Resolved]
  - Platelet count decreased [Not Recovered/Not Resolved]
  - Asthenia [Not Recovered/Not Resolved]
  - Fatigue [Not Recovered/Not Resolved]
  - Drug dispensing error [Unknown]
  - Blood testosterone decreased [Not Recovered/Not Resolved]
  - Nausea [Not Recovered/Not Resolved]
  - Protein urine present [Not Recovered/Not Resolved]
  - Rash [Not Recovered/Not Resolved]
  - Blood urine present [Not Recovered/Not Resolved]
  - Headache [Not Recovered/Not Resolved]

NARRATIVE: CASE EVENT DATE: 2014
